FAERS Safety Report 7619715-7 (Version None)
Quarter: 2011Q3

REPORT INFORMATION
  Report Type: 
  Country: None (occurrence: None)
  Receive Date: 20110719
  Receipt Date: 20110706
  Transmission Date: 20111222
  Serious: Yes (Hospitalization)
  Sender: FDA-Public Use
  Company Number: US-AMGEN-USACT2011034418

PATIENT
  Age: 18 Year
  Sex: Female

DRUGS (13)
  1. FILGRASTIM [Suspect]
     Indication: PRODUCT USED FOR UNKNOWN INDICATION
  2. DOCETAXEL [Concomitant]
  3. LEXAPRO [Concomitant]
  4. BACTRIM [Concomitant]
  5. SODIUM BICARBONATE [Concomitant]
  6. AVASTIN [Concomitant]
  7. DEXAMETHASONE [Concomitant]
  8. IFOSFAMIDE [Concomitant]
  9. MIFAMURTIDE [Concomitant]
     Indication: BONE SARCOMA
     Dosage: 2 MG/M2, UNK
     Route: 042
     Dates: start: 20100602, end: 20101117
  10. CISPLATIN [Concomitant]
  11. NEURONTIN [Concomitant]
  12. NORCO [Concomitant]
  13. GEMCITABINE [Concomitant]

REACTIONS (2)
  - BLOOD CREATININE INCREASED [None]
  - PERICARDIAL EFFUSION [None]
